FAERS Safety Report 14394720 (Version 1)
Quarter: 2018Q1

REPORT INFORMATION
  Report Type: Spontaneous
  Country: US (occurrence: US)
  Receive Date: 20180116
  Receipt Date: 20180116
  Transmission Date: 20180509
  Serious: No
  Sender: FDA-Public Use
  Company Number: US-ALLERGAN-1705099US

PATIENT
  Age: 57 Year
  Sex: Female

DRUGS (2)
  1. BOTOX COSMETIC [Suspect]
     Active Substance: ONABOTULINUMTOXINA
     Indication: SKIN WRINKLING
     Dosage: 14 UNITS, SINGLE
     Route: 030
     Dates: start: 20170202, end: 20170202
  2. JUVEDERM [Concomitant]
     Active Substance: HYALURONIC ACID
     Indication: PRODUCT USED FOR UNKNOWN INDICATION
     Dosage: UNK
     Route: 065
     Dates: start: 20170202, end: 20170202

REACTIONS (6)
  - Paraesthesia [Recovered/Resolved]
  - Headache [Recovering/Resolving]
  - Hypoaesthesia [Recovered/Resolved]
  - Insomnia [Not Recovered/Not Resolved]
  - Discomfort [Recovering/Resolving]
  - Tinnitus [Not Recovered/Not Resolved]

NARRATIVE: CASE EVENT DATE: 20170202
